FAERS Safety Report 14447115 (Version 2)
Quarter: 2018Q2

REPORT INFORMATION
  Report Type: Report from Study
  Country: US (occurrence: US)
  Receive Date: 20180126
  Receipt Date: 20180430
  Transmission Date: 20180711
  Serious: Yes (Other)
  Sender: FDA-Public Use
  Company Number: US-ASTELLAS-2018US004672

PATIENT
  Sex: Male

DRUGS (1)
  1. MIRABEGRON [Suspect]
     Active Substance: MIRABEGRON
     Indication: URGE INCONTINENCE
     Route: 048

REACTIONS (5)
  - Bladder disorder [Unknown]
  - Myocardial infarction [Unknown]
  - Cognitive disorder [Unknown]
  - Speech disorder [Unknown]
  - Cerebrovascular accident [Unknown]
